FAERS Safety Report 10623717 (Version 3)
Quarter: 2015Q1

REPORT INFORMATION
  Report Type: Spontaneous
  Country: CZ (occurrence: CZ)
  Receive Date: 20141203
  Receipt Date: 20150128
  Transmission Date: 20150720
  Serious: Yes (Hospitalization, Other)
  Sender: FDA-Public Use
  Company Number: CZ-ABBVIE-14P-217-1314606-00

PATIENT
  Age: 16 Year
  Sex: Female

DRUGS (2)
  1. SULFAMETHIZOLE W/TRIMETHOPRIM [Suspect]
     Active Substance: SULFAMETHOXAZOLE\TRIMETHOPRIM
     Indication: URINARY TRACT INFECTION
     Route: 048
  2. DEPAKENE [Suspect]
     Active Substance: VALPROIC ACID
     Indication: PETIT MAL EPILEPSY
     Route: 048

REACTIONS (33)
  - Headache [Unknown]
  - Pruritus [Unknown]
  - Aspartate aminotransferase increased [Unknown]
  - Serum ferritin increased [Unknown]
  - Pyrexia [Unknown]
  - Kernig^s sign [Unknown]
  - Papule [Unknown]
  - Skin exfoliation [Unknown]
  - Petechiae [Unknown]
  - Meningitis aseptic [Recovered/Resolved]
  - Muscular weakness [Unknown]
  - Photophobia [Unknown]
  - Altered state of consciousness [Unknown]
  - Pleocytosis [Unknown]
  - Erythema [Unknown]
  - Skin warm [Unknown]
  - Thrombocytopenia [Unknown]
  - Fibrin D dimer increased [Unknown]
  - C-reactive protein increased [Unknown]
  - Lasegue^s test positive [Unknown]
  - Confusional state [Unknown]
  - Purpura [Unknown]
  - CSF white blood cell count increased [Unknown]
  - Rash [Unknown]
  - Toxic epidermal necrolysis [Unknown]
  - CSF protein increased [Unknown]
  - Alanine aminotransferase increased [Unknown]
  - Nausea [Unknown]
  - Musculoskeletal stiffness [Unknown]
  - Restlessness [Unknown]
  - Meningism [Unknown]
  - Pain [Unknown]
  - Lymphocytic infiltration [Unknown]
